FAERS Safety Report 7622679-3 (Version None)
Quarter: 2011Q3

REPORT INFORMATION
  Report Type: 
  Country: None (occurrence: None)
  Receive Date: 20110712
  Receipt Date: 20110629
  Transmission Date: 20111222
  Serious: Yes (Other)
  Sender: FDA-Public Use
  Company Number: 2011MA008205

PATIENT
  Age: 59 Year
  Sex: Female
  Weight: 69.4003 kg

DRUGS (1)
  1. SPIRONOLACTONE [Suspect]
     Indication: METABOLIC SYNDROME
     Dosage: 50 MG;BID
     Dates: end: 20110101

REACTIONS (2)
  - BREAST CANCER [None]
  - OESTROGEN RECEPTOR ASSAY POSITIVE [None]
